FAERS Safety Report 25507467 (Version 2)
Quarter: 2025Q3

REPORT INFORMATION
  Report Type: Report from Study
  Country: ZA (occurrence: ZA)
  Receive Date: 20250703
  Receipt Date: 20250810
  Transmission Date: 20251021
  Serious: Yes (Other)
  Sender: ALEXION PHARMACEUTICALS
  Company Number: ZA-AstraZeneca-CH-00899775A

PATIENT
  Age: 73 Year
  Sex: Female

DRUGS (8)
  1. BUDESONIDE\FORMOTEROL [Suspect]
     Active Substance: BUDESONIDE\FORMOTEROL
     Indication: Asthma
  2. Peploc [Concomitant]
     Indication: Ulcer
     Route: 065
  3. FLUTICASONE PROPIONATE [Concomitant]
     Active Substance: FLUTICASONE PROPIONATE
     Indication: Hypersensitivity
  4. Spiractin [Concomitant]
     Indication: Hypertension
  5. Lipogen [Concomitant]
     Indication: Blood cholesterol
  6. Serdep [Concomitant]
     Indication: Psychiatric care
  7. PERINDOPRIL [Concomitant]
     Active Substance: PERINDOPRIL
     Indication: Hypertension
  8. ALBUTEROL SULFATE [Concomitant]
     Active Substance: ALBUTEROL SULFATE
     Indication: Bronchospasm

REACTIONS (6)
  - Road traffic accident [Unknown]
  - Joint dislocation [Unknown]
  - Rib fracture [Unknown]
  - Haematoma [Unknown]
  - Spinal fracture [Unknown]
  - Dyspnoea [Unknown]
